FAERS Safety Report 9515864 (Version 1)
Quarter: 2013Q3

REPORT INFORMATION
  Report Type: Spontaneous
  Country: US (occurrence: US)
  Receive Date: 20130911
  Receipt Date: 20130911
  Transmission Date: 20140515
  Serious: No
  Sender: FDA-Public Use
  Company Number: US-BAYER-2013-109175

PATIENT
  Age: 25 Year
  Sex: Female
  Weight: 56.69 kg

DRUGS (3)
  1. ALEVE CAPLET [Suspect]
     Indication: BACK PAIN
     Dosage: 4 DF, ONCE
     Route: 048
  2. PAXIL [Concomitant]
  3. AMBIEN [Concomitant]

REACTIONS (3)
  - Palpitations [Not Recovered/Not Resolved]
  - Extra dose administered [None]
  - Abdominal pain upper [Not Recovered/Not Resolved]
